FAERS Safety Report 15323832 (Version 30)
Quarter: 2020Q4

REPORT INFORMATION
  Report Type: Spontaneous
  Country: CA (occurrence: CA)
  Receive Date: 20180828
  Receipt Date: 20201218
  Transmission Date: 20210113
  Serious: Yes (Hospitalization, Other)
  Sender: FDA-Public Use
  Company Number: CA-CELLTRION INC.-2018CA020775

PATIENT

DRUGS (38)
  1. INFLECTRA [Suspect]
     Active Substance: INFLIXIMAB-DYYB
     Dosage: 400 MG, 0, 2, 6 WEEKS, THEN EVERY 8 WEEKS
     Route: 042
     Dates: start: 20180607, end: 20180607
  2. INFLECTRA [Suspect]
     Active Substance: INFLIXIMAB-DYYB
     Dosage: 600 MG (10 MG/KG), 0, 2, 6 WEEKS, THEN EVERY 6 WEEKS
     Route: 042
     Dates: start: 20190424, end: 20190424
  3. INFLECTRA [Suspect]
     Active Substance: INFLIXIMAB-DYYB
     Dosage: 600 MG, (10MG/KG) 0, 2, 6 WEEKS, THEN EVERY 6 WEEKS
     Route: 042
     Dates: start: 20200110, end: 20200110
  4. PREDNISONE. [Concomitant]
     Active Substance: PREDNISONE
     Indication: CONDITION AGGRAVATED
     Dosage: 40 MG, DAILY
     Route: 048
     Dates: start: 20180818, end: 20180825
  5. ACETAMINOPHEN. [Concomitant]
     Active Substance: ACETAMINOPHEN
     Dosage: 650 MG, UNK
     Route: 048
     Dates: start: 20200618
  6. INFLECTRA [Suspect]
     Active Substance: INFLIXIMAB-DYYB
     Dosage: 600 MG (10 MG/KG), 0, 2, 6 WEEKS, THEN EVERY 6 WEEKS
     Route: 042
     Dates: start: 20190130, end: 20190130
  7. INFLECTRA [Suspect]
     Active Substance: INFLIXIMAB-DYYB
     Dosage: 600 MG (10 MG/KG), 0, 2, 6 WEEKS, THEN EVERY 6 WEEKS
     Route: 042
     Dates: start: 20190313, end: 20190313
  8. INFLECTRA [Suspect]
     Active Substance: INFLIXIMAB-DYYB
     Dosage: 600 MG, Q 0, 2, 6 WEEKS, THEN EVERY 6 WEEKS
     Route: 042
     Dates: start: 20200507, end: 20200507
  9. 5-ASA [Concomitant]
     Active Substance: MESALAMINE
     Dosage: UNK
  10. ACETAMINOPHEN. [Concomitant]
     Active Substance: ACETAMINOPHEN
     Dosage: 650 MG, UNK
     Dates: start: 20190424
  11. HYDROCORTISONE. [Concomitant]
     Active Substance: HYDROCORTISONE
     Dosage: 100 MG, UNK
     Dates: start: 20190424
  12. HYDROCORTISONE. [Concomitant]
     Active Substance: HYDROCORTISONE
     Dosage: 100 MG, UNK
     Route: 042
     Dates: start: 20200618
  13. INFLECTRA [Suspect]
     Active Substance: INFLIXIMAB-DYYB
     Dosage: 600 MG (10 MG/KG), 0, 2, 6 WEEKS, THEN EVERY 6 WEEKS
     Route: 042
     Dates: start: 20180919, end: 20180919
  14. INFLECTRA [Suspect]
     Active Substance: INFLIXIMAB-DYYB
     Dosage: 600 MG (10 MG/KG), 0, 2, 6 WEEKS, THEN EVERY 6 WEEKS
     Route: 042
     Dates: start: 20181022, end: 20181022
  15. INFLECTRA [Suspect]
     Active Substance: INFLIXIMAB-DYYB
     Dosage: 600 MG (10 MG/KG), 0, 2, 6 WEEKS, THEN EVERY 6 WEEKS
     Route: 042
     Dates: start: 20190313, end: 20190313
  16. INFLECTRA [Suspect]
     Active Substance: INFLIXIMAB-DYYB
     Dosage: 600 MG, (10 MG/KG) 0, 2, 6 WEEKS, THEN EVERY 6 WEEKS
     Route: 042
     Dates: start: 20191016, end: 20191016
  17. DIPHENHYDRAMINE. [Concomitant]
     Active Substance: DIPHENHYDRAMINE
     Dosage: 50 MG, UNK
     Route: 042
     Dates: start: 20200618
  18. INFLECTRA [Suspect]
     Active Substance: INFLIXIMAB-DYYB
     Dosage: 600 MG (10 MG/KG), 0, 2, 6 WEEKS, THEN EVERY 6 WEEKS
     Route: 042
     Dates: start: 20181022, end: 20181022
  19. INFLECTRA [Suspect]
     Active Substance: INFLIXIMAB-DYYB
     Dosage: 600 MG, (10MG/KG) 0, 2, 6 WEEKS, THEN EVERY 6 WEEKS
     Route: 042
     Dates: start: 20191129, end: 20191129
  20. INFLECTRA [Suspect]
     Active Substance: INFLIXIMAB-DYYB
     Dosage: 600 MG, Q 0, 2, 6 WEEKS, THEN EVERY 6 WEEKS
     Route: 042
     Dates: start: 20200302, end: 20200302
  21. INFLECTRA [Suspect]
     Active Substance: INFLIXIMAB-DYYB
     Dosage: 600 MG, 0, 2, 6 WEEKS, THEN EVERY 6 WEEKS
     Route: 042
     Dates: start: 20200618
  22. INFLECTRA [Suspect]
     Active Substance: INFLIXIMAB-DYYB
     Dosage: 600 MG, 0, 2, 6 WEEKS, THEN EVERY 6 WEEKS
     Route: 042
     Dates: start: 20200911
  23. INFLECTRA [Suspect]
     Active Substance: INFLIXIMAB-DYYB
     Dosage: 600 MG (10 MG/KG), 0, 2, 6 WEEKS, THEN EVERY 6 WEEKS
     Route: 042
     Dates: start: 20181219, end: 20181219
  24. INFLECTRA [Suspect]
     Active Substance: INFLIXIMAB-DYYB
     Dosage: 600 MG, 0, 2, 6 WEEKS, THEN EVERY 6 WEEKS
     Route: 042
     Dates: start: 20201026
  25. INFLECTRA [Suspect]
     Active Substance: INFLIXIMAB-DYYB
     Indication: COLITIS ULCERATIVE
     Dosage: 400 MG, 0, 2, 6 WEEKS, THEN EVERY 8 WEEKS
     Route: 042
     Dates: start: 20180525, end: 20180525
  26. INFLECTRA [Suspect]
     Active Substance: INFLIXIMAB-DYYB
     Dosage: 600 MG (10 MG/KG), 0, 2, 6 WEEKS, THEN EVERY 6 WEEKS
     Route: 042
     Dates: start: 20190717, end: 20190717
  27. INFLECTRA [Suspect]
     Active Substance: INFLIXIMAB-DYYB
     Dosage: 600 MG (10 MG/KG), 0, 2, 6 WEEKS, THEN EVERY 6 WEEKS
     Route: 042
     Dates: start: 20190904, end: 20190904
  28. INFLECTRA [Suspect]
     Active Substance: INFLIXIMAB-DYYB
     Dosage: 600 MG, 0, 2, 6 WEEKS, THEN EVERY 6 WEEKS
     Route: 042
     Dates: start: 20200731
  29. PREDNISONE. [Concomitant]
     Active Substance: PREDNISONE
     Dosage: 40 MG, DAILY (TAPERING COURSE FOR 8 WEEKS)
     Route: 048
  30. PREDNISONE. [Concomitant]
     Active Substance: PREDNISONE
     Dosage: TAPERING COURSE
     Route: 065
  31. DIPHENHYDRAMINE. [Concomitant]
     Active Substance: DIPHENHYDRAMINE
     Dosage: 50 MG, UNK
     Dates: start: 20190424
  32. INFLECTRA [Suspect]
     Active Substance: INFLIXIMAB-DYYB
     Dosage: 400 MG, 0, 2, 6 WEEKS, THEN EVERY 8 WEEKS
     Route: 042
     Dates: start: 20180703, end: 20180703
  33. INFLECTRA [Suspect]
     Active Substance: INFLIXIMAB-DYYB
     Dosage: 600 MG (10 MG/KG), 0, 2, 6 WEEKS, THEN EVERY 6 WEEKS
     Route: 042
     Dates: start: 20180831, end: 20180831
  34. INFLECTRA [Suspect]
     Active Substance: INFLIXIMAB-DYYB
     Dosage: 600 MG, (10MG/KG) 0, 2, 6 WEEKS, THEN EVERY 6 WEEKS
     Route: 042
     Dates: start: 20200110, end: 20200110
  35. INFLECTRA [Suspect]
     Active Substance: INFLIXIMAB-DYYB
     Dosage: 600 MG (10 MG/KG), 0, 2, 6 WEEKS, THEN EVERY 6 WEEKS
     Route: 042
     Dates: start: 20190621, end: 20190621
  36. INFLECTRA [Suspect]
     Active Substance: INFLIXIMAB-DYYB
     Dosage: 600 MG, Q 0, 2, 6 WEEKS, THEN EVERY 6 WEEKS
     Route: 042
     Dates: start: 20200302, end: 20200302
  37. INFLECTRA [Suspect]
     Active Substance: INFLIXIMAB-DYYB
     Dosage: 600 MG, 0, 2, 6 WEEKS, THEN EVERY 6 WEEKS
     Route: 042
     Dates: start: 20201210
  38. 5-ASA [Concomitant]
     Active Substance: MESALAMINE
     Dosage: UNK
     Route: 054

REACTIONS (26)
  - Chest discomfort [Recovered/Resolved]
  - Arthralgia [Recovered/Resolved]
  - Blood pressure fluctuation [Unknown]
  - Feeling hot [Recovered/Resolved]
  - Intentional product use issue [Unknown]
  - Nausea [Unknown]
  - Dyspnoea [Unknown]
  - Somnolence [Unknown]
  - Malaise [Recovering/Resolving]
  - Flushing [Recovered/Resolved]
  - Panic attack [Unknown]
  - Influenza [Recovered/Resolved]
  - Oropharyngeal pain [Unknown]
  - Condition aggravated [Not Recovered/Not Resolved]
  - Therapeutic response decreased [Unknown]
  - Pruritus [Recovered/Resolved]
  - Heart rate irregular [Unknown]
  - Off label use [Unknown]
  - Headache [Recovered/Resolved]
  - Inappropriate schedule of product administration [Unknown]
  - Hyperhidrosis [Recovered/Resolved]
  - Back pain [Unknown]
  - C-reactive protein increased [Recovered/Resolved]
  - Pyrexia [Recovered/Resolved]
  - Feeling abnormal [Unknown]
  - Pallor [Unknown]

NARRATIVE: CASE EVENT DATE: 2018
